FAERS Safety Report 20249183 (Version 1)
Quarter: 2021Q4

REPORT INFORMATION
  Report Type: Spontaneous
  Country: GB (occurrence: GB)
  Receive Date: 20211229
  Receipt Date: 20211229
  Transmission Date: 20220303
  Serious: Yes (Other)
  Sender: FDA-Public Use
  Company Number: None

PATIENT
  Age: 27 Year
  Sex: Male
  Weight: 87 kg

DRUGS (1)
  1. NAPROXEN [Suspect]
     Active Substance: NAPROXEN
     Indication: Analgesic therapy
     Dosage: UNK
     Route: 048
     Dates: start: 20170608, end: 20170711

REACTIONS (1)
  - Tongue ulceration [Recovered/Resolved]

NARRATIVE: CASE EVENT DATE: 20170618
